FAERS Safety Report 7230754-0 (Version None)
Quarter: 2011Q1

REPORT INFORMATION
  Report Type: 
  Country: None (occurrence: None)
  Receive Date: 20110105
  Receipt Date: 20101221
  Transmission Date: 20110831
  Serious: Yes (Hospitalization)
  Sender: FDA-Public Use
  Company Number: 2010-3447

PATIENT
  Age: 76 Year
  Sex: Female
  Weight: 57.3 kg

DRUGS (10)
  1. DIPYRIDAMOLE [Concomitant]
  2. ASPIRIN [Concomitant]
  3. DYSPORT [Suspect]
     Indication: MUSCLE SPASTICITY
     Dosage: 1000 UNITS (1000 UNITS, SINGLE CYCLE), INTRAMUSCULAR
     Route: 030
     Dates: start: 20100816, end: 20100816
  4. CHEMOTHERAPY NOS (CHEMOTHERAPY NOS) [Concomitant]
  5. PULMICORT [Concomitant]
  6. CO-CODAMOL (PANADEINE CO) [Concomitant]
  7. EXEMESTANE [Concomitant]
  8. FUROSEMIDE [Concomitant]
  9. PERINDOPRIL ERBUMINE [Concomitant]
  10. LANSOPRAZOLE [Concomitant]

REACTIONS (4)
  - LOWER RESPIRATORY TRACT INFECTION [None]
  - PRODUCT QUALITY ISSUE [None]
  - MOBILITY DECREASED [None]
  - ASTHENIA [None]
